FAERS Safety Report 6048146-9 (Version None)
Quarter: 2009Q1

REPORT INFORMATION
  Report Type: 
  Country: None (occurrence: None)
  Receive Date: 20090123
  Receipt Date: 20090119
  Transmission Date: 20090719
  Serious: Yes (Hospitalization)
  Sender: FDA-Public Use
  Company Number: PHHO2007DE11582

PATIENT
  Sex: Female
  Weight: 75 kg

DRUGS (11)
  1. ZOLEDRONIC ACID [Suspect]
     Indication: BREAST CANCER
     Dosage: 6MG EVERY 3 MONTHS
     Route: 042
     Dates: start: 20070222
  2. ERGENYL [Interacting]
     Dosage: UNK
     Dates: start: 20070111
  3. LAMICTAL [Interacting]
     Dosage: UNK
     Dates: start: 20070111
  4. LUMINAL [Interacting]
  5. DOCETAXEL [Interacting]
     Dosage: UNK
     Dates: start: 20061012, end: 20070126
  6. GEMCITABINE [Interacting]
     Dosage: UNK
     Dates: start: 20061012, end: 20070126
  7. FLUOROURACIL [Interacting]
     Dosage: UNK
     Dates: start: 20061012, end: 20070126
  8. EPIRUBICIN [Interacting]
     Dosage: UNK
     Dates: start: 20061012, end: 20070126
  9. CYCLOPHOSPHAMIDE [Interacting]
     Dosage: UNK
     Dates: start: 20061012, end: 20070126
  10. TAMOXIFEN CITRATE [Concomitant]
     Dosage: UNK
     Dates: start: 20070222
  11. GEMCAL [Concomitant]

REACTIONS (3)
  - DRUG INTERACTION [None]
  - EPILEPSY [None]
  - MUSCULOSKELETAL PAIN [None]
